FAERS Safety Report 15642431 (Version 1)
Quarter: 2018Q4

REPORT INFORMATION
  Report Type: Spontaneous
  Country: FR (occurrence: FR)
  Receive Date: 20181121
  Receipt Date: 20181121
  Transmission Date: 20190205
  Serious: Yes (Hospitalization)
  Sender: FDA-Public Use
  Company Number: FR-TEVA-2018-FR-976702

PATIENT
  Age: 55 Year
  Sex: Male
  Weight: 76 kg

DRUGS (8)
  1. ONBREZ BREEZHALER 150 MICROGRAMMES, POUDRE POUR INHALATION EN G?LULE [Concomitant]
     Indication: ASTHMA
     Dosage: 1 DOSAGE FORMS DAILY;
     Route: 055
  2. CLOZAPINE. [Suspect]
     Active Substance: CLOZAPINE
     Indication: SCHIZOPHRENIA
     Dosage: 700 MILLIGRAM DAILY; 350-0-400
     Route: 048
     Dates: start: 20180806, end: 20181008
  3. DEPAKOTE [Concomitant]
     Active Substance: DIVALPROEX SODIUM
     Indication: SCHIZOPHRENIA
     Dosage: 1500 MILLIGRAM DAILY; 100-50-50
     Route: 048
  4. SINGULAIR [Concomitant]
     Active Substance: MONTELUKAST SODIUM
     Indication: ASTHMA
     Dosage: 1 DOSAGE FORMS DAILY;
     Route: 048
  5. MIANSERINE (CHLORHYDRATE DE) [Concomitant]
     Active Substance: MIANSERIN HYDROCHLORIDE
     Indication: SCHIZOPHRENIA
     Dosage: 30 MILLIGRAM DAILY; 100-50-50
     Route: 048
  6. NOZINAN [Concomitant]
     Active Substance: LEVOMEPROMAZINE
     Indication: SCHIZOPHRENIA
     Dosage: 150 MILLIGRAM DAILY; 100-50-50
     Route: 048
  7. INEXIUM [Concomitant]
     Active Substance: ESOMEPRAZOLE
     Indication: GASTROOESOPHAGEAL REFLUX DISEASE
     Dosage: 200 MILLIGRAM DAILY; 100-50-50
     Route: 048
  8. AKINETON L.P. 4 MG, COMPRIM? ENROB? ? LIB?RATION PROLONG?E [Concomitant]
     Dosage: 1 DOSAGE FORMS DAILY;
     Route: 048

REACTIONS (1)
  - Pancytopenia [Recovered/Resolved]

NARRATIVE: CASE EVENT DATE: 20180808
